FAERS Safety Report 7549106-9 (Version None)
Quarter: 2011Q2

REPORT INFORMATION
  Report Type: 
  Country: None (occurrence: None)
  Receive Date: 20110615
  Receipt Date: 20110601
  Transmission Date: 20111010
  Serious: Yes (Disabling)
  Sender: FDA-Public Use
  Company Number: RO-BAYER-2011-047931

PATIENT
  Age: 66 Year
  Sex: Male

DRUGS (5)
  1. ASPIRIN [Concomitant]
     Indication: THROMBOSIS PROPHYLAXIS
     Dosage: 75 MG, QD
     Dates: start: 20110310
  2. ABT-869 [Suspect]
     Indication: HEPATIC NEOPLASM MALIGNANT
     Dosage: UNK
  3. TRIMETAZIDINE [Concomitant]
     Indication: PROPHYLAXIS
     Dosage: 20 MG, BID
     Dates: start: 20080801
  4. SORAFENIB (RAF KINASE INHIBITOR) [Suspect]
     Indication: HEPATIC NEOPLASM MALIGNANT
     Dosage: 400 MG, BID
     Route: 048
     Dates: start: 20110127, end: 20110502
  5. LIV 52 [Concomitant]
     Indication: PROPHYLAXIS
     Dosage: 100 MG, TID
     Dates: start: 20100101

REACTIONS (1)
  - PORTAL VEIN THROMBOSIS [None]
